FAERS Safety Report 6025813-4 (Version None)
Quarter: 2008Q4

REPORT INFORMATION
  Report Type: 
  Country: None (occurrence: None)
  Receive Date: 20081224
  Receipt Date: 20081217
  Transmission Date: 20090506
  Serious: Yes (Hospitalization)
  Sender: FDA-Public Use
  Company Number: 2008002683

PATIENT
  Age: 57 Year
  Sex: Male
  Weight: 89.9 kg

DRUGS (13)
  1. ERLOTINIB (ERLOTINIB) (TABLET) (ERLOTINIB) [Suspect]
     Indication: RENAL CELL CARCINOMA
     Dosage: (50 MG,QD),ORAL;  (50 MILLICURIES,QD),ORAL
     Route: 048
     Dates: start: 20070301, end: 20081109
  2. ERLOTINIB (ERLOTINIB) (TABLET) (ERLOTINIB) [Suspect]
     Indication: RENAL CELL CARCINOMA
     Dosage: (50 MG,QD),ORAL;  (50 MILLICURIES,QD),ORAL
     Route: 048
     Dates: start: 20081117
  3. SUNITINIB MALATE [Suspect]
     Indication: RENAL CELL CARCINOMA
     Dosage: (50 MG,QD),ORAL
     Route: 048
     Dates: start: 20070301
  4. ACETAMINOPHEN [Concomitant]
  5. AZOR [Concomitant]
  6. NEXIUM [Concomitant]
  7. AMLODIPINE [Concomitant]
  8. ACETAMINOPHEN [Concomitant]
  9. ACETYLSALICYLIC ACID SRT [Concomitant]
  10. ESOMEPRAZOLE MAGNESIUM [Concomitant]
  11. LEVOTHYROXINE SODIUM [Concomitant]
  12. METOPROLOL TARTRATE [Concomitant]
  13. MULTI-VITAMINS [Concomitant]

REACTIONS (5)
  - CARBON DIOXIDE DECREASED [None]
  - CHOLANGITIS [None]
  - CHOLECYSTITIS [None]
  - CHOLELITHIASIS [None]
  - DEHYDRATION [None]
